FAERS Safety Report 10657827 (Version 5)
Quarter: 2015Q1

REPORT INFORMATION
  Report Type: Spontaneous
  Country: US (occurrence: None)
  Receive Date: 20141215
  Receipt Date: 20150212
  Transmission Date: 20150720
  Serious: Yes (Other)
  Sender: FDA-Public Use
  Company Number: 2014SA168450

PATIENT
  Age: 33 Year
  Sex: Female

DRUGS (7)
  1. ICY HOT POWER GEL [Suspect]
     Active Substance: MENTHOL
     Indication: MUSCLE SPASMS
     Route: 061
     Dates: start: 20141202, end: 20141202
  2. ICY HOT POWER GEL [Suspect]
     Active Substance: MENTHOL
     Indication: MUSCULOSKELETAL DISCOMFORT
     Route: 061
     Dates: start: 20141202, end: 20141202
  3. ENDOCET [Concomitant]
     Active Substance: ACETAMINOPHEN\OXYCODONE HYDROCHLORIDE
  4. CARBAMAZEPINE. [Concomitant]
     Active Substance: CARBAMAZEPINE
  5. PROMETHAZINE HYDROCHLORIDE. [Concomitant]
     Active Substance: PROMETHAZINE HYDROCHLORIDE
  6. SUMATRIPTAN SUCCINATE. [Concomitant]
     Active Substance: SUMATRIPTAN SUCCINATE
  7. SILVADENE [Concomitant]
     Active Substance: SILVER SULFADIAZINE

REACTIONS (7)
  - Application site burn [None]
  - Application site swelling [None]
  - No reaction on previous exposure to drug [None]
  - Chemical injury [None]
  - Application site scar [None]
  - Application site pain [None]
  - Burns first degree [None]

NARRATIVE: CASE EVENT DATE: 20141202
